FAERS Safety Report 6129622-7 (Version None)
Quarter: 2009Q1

REPORT INFORMATION
  Report Type: 
  Country: None (occurrence: None)
  Receive Date: 20090323
  Receipt Date: 20090323
  Transmission Date: 20090719
  Serious: Yes (Hospitalization, Other)
  Sender: FDA-Public Use
  Company Number: None

PATIENT
  Sex: Female
  Weight: 23 kg

DRUGS (1)
  1. BOTULINUM TOXIN [Suspect]
     Indication: SALIVARY HYPERSECRETION
     Dosage: 50 UNITS X1 OTHER
     Route: 050
     Dates: start: 20090209, end: 20090209

REACTIONS (6)
  - ASPIRATION [None]
  - CONDITION AGGRAVATED [None]
  - DYSPHASIA [None]
  - DYSPHONIA [None]
  - LETHARGY [None]
  - SECRETION DISCHARGE [None]
